FAERS Safety Report 19461417 (Version 1)
Quarter: 2021Q2

REPORT INFORMATION
  Report Type: Spontaneous
  Country: US (occurrence: US)
  Receive Date: 20210625
  Receipt Date: 20210625
  Transmission Date: 20210717
  Serious: No
  Sender: FDA-Public Use
  Company Number: US-GW PHARMA-202106USGW03024

PATIENT

DRUGS (1)
  1. EPIDIOLEX [Suspect]
     Active Substance: CANNABIDIOL
     Indication: EPILEPSY
     Dosage: 6.53 MG/KG/DAY, 200 MILLIGRAM, BID
     Route: 048
     Dates: start: 20190508

REACTIONS (5)
  - Lethargy [Not Recovered/Not Resolved]
  - Seizure [Recovering/Resolving]
  - Sinusitis [Recovered/Resolved]
  - Weight increased [Recovered/Resolved]
  - Decreased activity [Recovered/Resolved]
